FAERS Safety Report 16977993 (Version 1)
Quarter: 2019Q4

REPORT INFORMATION
  Report Type: Spontaneous
  Country: AU (occurrence: AU)
  Receive Date: 20191031
  Receipt Date: 20191031
  Transmission Date: 20200122
  Serious: Yes (Other)
  Sender: FDA-Public Use
  Company Number: AU-APOTEX-2019AP023055

PATIENT
  Sex: Female

DRUGS (7)
  1. AROPAX [Concomitant]
     Active Substance: PAROXETINE HYDROCHLORIDE
     Indication: PRODUCT USED FOR UNKNOWN INDICATION
     Dosage: 40 MG, UNK
     Route: 065
  2. APO-MIRTAZAPINE [Suspect]
     Active Substance: MIRTAZAPINE
     Dosage: 0.5 DF, DAILY
     Route: 065
     Dates: start: 201910
  3. APO-MIRTAZAPINE [Suspect]
     Active Substance: MIRTAZAPINE
     Indication: ANXIETY
     Dosage: 0.5 DF, QD
     Route: 065
  4. AROPAX [Concomitant]
     Active Substance: PAROXETINE HYDROCHLORIDE
     Dosage: 1.5 DF, UNK
     Route: 065
  5. APO-MIRTAZAPINE [Suspect]
     Active Substance: MIRTAZAPINE
     Dosage: 0.25 DF, UNK
     Route: 065
     Dates: start: 20191019
  6. APO-MIRTAZAPINE [Suspect]
     Active Substance: MIRTAZAPINE
     Dosage: 1 DF, DAILY
     Route: 065
     Dates: start: 201909
  7. APO-MIRTAZAPINE [Suspect]
     Active Substance: MIRTAZAPINE
     Indication: DEPRESSION
     Dosage: 1 DF, Q.H.S.
     Route: 065
     Dates: start: 20190914

REACTIONS (8)
  - Treatment noncompliance [Unknown]
  - Hypoaesthesia oral [Not Recovered/Not Resolved]
  - Depressed mood [Not Recovered/Not Resolved]
  - Dehydration [Not Recovered/Not Resolved]
  - Facial paralysis [Not Recovered/Not Resolved]
  - Headache [Not Recovered/Not Resolved]
  - Product administration error [Unknown]
  - Drug ineffective [Unknown]

NARRATIVE: CASE EVENT DATE: 2019
